FAERS Safety Report 20401390 (Version 2)
Quarter: 2022Q1

REPORT INFORMATION
  Report Type: Spontaneous
  Country: US (occurrence: US)
  Receive Date: 20220131
  Receipt Date: 20220201
  Transmission Date: 20220423
  Serious: No
  Sender: FDA-Public Use
  Company Number: US-ABBVIE-21K-163-4050203-00

PATIENT
  Age: 66 Year
  Sex: Female
  Weight: 70.370 kg

DRUGS (11)
  1. HUMIRA [Suspect]
     Active Substance: ADALIMUMAB
     Indication: Polymyalgia rheumatica
     Route: 058
     Dates: start: 201912, end: 20210820
  2. METHOTREXATE [Concomitant]
     Active Substance: METHOTREXATE
     Indication: Polymyalgia rheumatica
  3. PREDNISONE [Concomitant]
     Active Substance: PREDNISONE
     Indication: Polymyalgia rheumatica
  4. MELOXICAM [Concomitant]
     Active Substance: MELOXICAM
     Indication: Polymyalgia rheumatica
  5. FOLIC ACID [Concomitant]
     Active Substance: FOLIC ACID
     Indication: Polymyalgia rheumatica
  6. BAYER ASPIRIN [Concomitant]
     Active Substance: ASPIRIN
     Indication: Polymyalgia rheumatica
  7. AMITRIPTYLINE [Concomitant]
     Active Substance: AMITRIPTYLINE
     Indication: Sleep disorder therapy
  8. TRAZODONE [Concomitant]
     Active Substance: TRAZODONE HYDROCHLORIDE
     Indication: Sleep disorder therapy
  9. DICYCLOMINE [Concomitant]
     Active Substance: DICYCLOMINE HYDROCHLORIDE
     Indication: Gastrooesophageal reflux disease
  10. OCUVITE [Concomitant]
     Active Substance: VITAMINS
     Indication: Eye disorder
  11. COVID-19 VACCINE [Concomitant]
     Indication: COVID-19 immunisation
     Route: 030
     Dates: start: 202101, end: 202101

REACTIONS (5)
  - Gait disturbance [Recovering/Resolving]
  - Off label use [Recovering/Resolving]
  - Blister [Recovering/Resolving]
  - Foot and mouth disease [Recovering/Resolving]
  - COVID-19 [Recovered/Resolved]

NARRATIVE: CASE EVENT DATE: 20200101
